FAERS Safety Report 12697661 (Version 1)
Quarter: 2016Q3

REPORT INFORMATION
  Report Type: Spontaneous
  Country: US (occurrence: None)
  Receive Date: 20160829
  Receipt Date: 20160829
  Transmission Date: 20161109
  Serious: No
  Sender: FDA-Public Use
  Company Number: None

PATIENT
  Age: 54 Year
  Sex: Female
  Weight: 92.08 kg

DRUGS (13)
  1. COMFORT IRON (IRON BISGLYCINATE) [Concomitant]
  2. LIOTHYRONINE SOD [Concomitant]
  3. FOLIC ACID. [Concomitant]
     Active Substance: FOLIC ACID
  4. PHENTERMINE. [Concomitant]
     Active Substance: PHENTERMINE
  5. PROBIOTIC [Concomitant]
     Active Substance: PROBIOTICS NOS
  6. VITAMIN E [Concomitant]
     Active Substance: .ALPHA.-TOCOPHEROL
  7. VITAMIN D3 [Concomitant]
     Active Substance: CHOLECALCIFEROL
  8. SELENIUM [Concomitant]
     Active Substance: SELENIUM
  9. OMEGA 3 PLUS [Concomitant]
  10. SYNTHROID [Suspect]
     Active Substance: LEVOTHYROXINE SODIUM
     Indication: HYPOTHYROIDISM
     Dosage: 44 TABLET(S) ONCE A DAY TAKEN BY MOUTH
     Route: 048
     Dates: start: 20160625, end: 20160825
  11. GLUCOSAMINE HYDROCHLORIDE [Concomitant]
     Active Substance: GLUCOSAMINE HYDROCHLORIDE
  12. OCCUGUARD PLUS ESTER-C [Concomitant]
  13. METHYL B12 [Concomitant]

REACTIONS (6)
  - Upper-airway cough syndrome [None]
  - Dizziness [None]
  - Asthma [None]
  - Migraine [None]
  - Feeling abnormal [None]
  - Perfume sensitivity [None]

NARRATIVE: CASE EVENT DATE: 20160727
